FAERS Safety Report 26155918 (Version 2)
Quarter: 2025Q4

REPORT INFORMATION
  Report Type: Spontaneous
  Country: US (occurrence: US)
  Receive Date: 20251215
  Receipt Date: 20251215
  Transmission Date: 20260117
  Serious: Yes (Other)
  Sender: ROCHE
  Company Number: US-ROCHE-10000455488

PATIENT
  Age: 47 Year
  Sex: Male

DRUGS (1)
  1. RITUXIMAB [Suspect]
     Active Substance: RITUXIMAB
     Indication: Dermatomyositis

REACTIONS (5)
  - Pancytopenia [Unknown]
  - Infection [Unknown]
  - Fungaemia [Unknown]
  - Haemolysis [Unknown]
  - Gastrointestinal haemorrhage [Unknown]
